FAERS Safety Report 19476883 (Version 1)
Quarter: 2021Q2

REPORT INFORMATION
  Report Type: Spontaneous
  Country: GB (occurrence: GB)
  Receive Date: 20210630
  Receipt Date: 20210630
  Transmission Date: 20210717
  Serious: Yes (Other)
  Sender: FDA-Public Use
  Company Number: GB-MYLANLABS-2021M1038002

PATIENT
  Sex: Female

DRUGS (31)
  1. VALPROATE SEMISODIUM [Concomitant]
     Active Substance: DIVALPROEX SODIUM
     Dosage: 500 MILLIGRAM, BID
     Dates: start: 201809, end: 201812
  2. PROMETHAZINE                       /00033002/ [Concomitant]
     Active Substance: PROMETHAZINE HYDROCHLORIDE
     Dosage: 25?50 MG, PRN
  3. IBUPROFEN                          /00109205/ [Concomitant]
     Active Substance: IBUPROFEN
     Dosage: 400 MILLIGRAM, PRN
  4. LITHIUM. [Concomitant]
     Active Substance: LITHIUM
     Dosage: UPTO 600 MILLIGRAM, QD
     Dates: start: 201804, end: 201806
  5. CLOZARIL [Suspect]
     Active Substance: CLOZAPINE
     Indication: SCHIZOPHRENIA
     Dosage: UNK
     Route: 048
     Dates: start: 20151013
  6. CLOZARIL [Suspect]
     Active Substance: CLOZAPINE
     Dosage: 700 MILLIGRAM, QD
     Dates: start: 2017, end: 2018
  7. CLOZARIL [Suspect]
     Active Substance: CLOZAPINE
     Dosage: UNK
     Route: 048
     Dates: start: 201507, end: 201608
  8. OLANZAPINE ACCORD [Concomitant]
     Active Substance: OLANZAPINE
     Dosage: UNK
     Dates: start: 201608
  9. MACROGOL + ELECTROLYTES SANDOZ [Concomitant]
     Dosage: PRN
     Route: 048
  10. NICOTINE                           /01033302/ [Concomitant]
     Active Substance: NICOTINE
     Dosage: 2 MILLIGRAM, PRN
  11. LITHIUM. [Concomitant]
     Active Substance: LITHIUM
     Dosage: 600 MILLIGRAM, QD
     Dates: start: 201806, end: 201809
  12. ZUCLOPENTHIXOL DECANOATE [Concomitant]
     Active Substance: ZUCLOPENTHIXOL DECANOATE
     Dosage: 300MG ONCE WEEKLY
     Dates: start: 201801, end: 201804
  13. ZUCLOPENTHIXOL DECANOATE [Concomitant]
     Active Substance: ZUCLOPENTHIXOL DECANOATE
     Dosage: 300MG ONCE WEEKLY
     Dates: start: 201812, end: 202106
  14. CHLORHEXIDINE                      /00133002/ [Concomitant]
     Active Substance: CHLORHEXIDINE GLUCONATE
     Dosage: 0.2 PERCENT, BID
  15. PARACETAMOL + CAFFEINE [Concomitant]
     Active Substance: ACETAMINOPHEN\CAFFEINE
     Dosage: 1 GRAM, PRN
  16. HALOPERIDOL. [Concomitant]
     Active Substance: HALOPERIDOL
     Dosage: UNK
     Dates: start: 201608
  17. CLONAZEPAM AUDEN [Concomitant]
     Active Substance: CLONAZEPAM
     Dosage: 6MG AT NIGHT
     Dates: start: 201812
  18. VALPROATE SEMISODIUM [Concomitant]
     Active Substance: DIVALPROEX SODIUM
     Dosage: 750 MG TWICE DAY
     Dates: start: 201801
  19. VALPROATE SEMISODIUM [Concomitant]
     Active Substance: DIVALPROEX SODIUM
     Dosage: 1500MG AT NIGHT
  20. VALPROATE SEMISODIUM [Concomitant]
     Active Substance: DIVALPROEX SODIUM
     Dosage: 1.5 GRAM, BID
     Dates: start: 201812
  21. ZUCLOPENTHIXOL DECANOATE [Concomitant]
     Active Substance: ZUCLOPENTHIXOL DECANOATE
     Dosage: 500 MG ONCE WEEKLY
     Dates: start: 201806, end: 201809
  22. PROCYCLIDINE                       /00031802/ [Concomitant]
     Dosage: 5 MILLIGRAM, QD
     Dates: start: 201812
  23. AMISULPRIDE [Concomitant]
     Active Substance: AMISULPRIDE
     Dosage: 800 MILLIGRAM, QD
     Dates: start: 2017
  24. CLOZARIL [Suspect]
     Active Substance: CLOZAPINE
     Dosage: 800 MILLIGRAM, QD
     Dates: start: 201608
  25. OLANZAPINE ACCORD [Concomitant]
     Active Substance: OLANZAPINE
     Dosage: 20 MILLIGRAM, QD
     Dates: start: 201812
  26. VALPROATE SEMISODIUM [Concomitant]
     Active Substance: DIVALPROEX SODIUM
     Dosage: 2500 MILLIGRAM, QD
     Dates: start: 201801, end: 201804
  27. ZUCLOPENTHIXOL DECANOATE [Concomitant]
     Active Substance: ZUCLOPENTHIXOL DECANOATE
     Dosage: 600MG ONCE WEEKLYUNK
     Dates: start: 201804, end: 201806
  28. CLOZARIL [Suspect]
     Active Substance: CLOZAPINE
     Dosage: UNK
     Route: 048
     Dates: start: 2010, end: 2015
  29. COLECALCIFEROL BENFEROL [Concomitant]
     Dosage: UNK, QD (1000 UNITS ONCE DAILY)
  30. LORAZEPAM A [Concomitant]
     Active Substance: LORAZEPAM
     Dosage: 1?2MG, PRN
  31. AMISULPRIDE [Concomitant]
     Active Substance: AMISULPRIDE
     Dosage: UNK
     Dates: start: 201507, end: 201608

REACTIONS (4)
  - Urinary incontinence [Unknown]
  - Treatment noncompliance [Unknown]
  - Off label use [Unknown]
  - Aggression [Unknown]
